FAERS Safety Report 10955604 (Version 2)
Quarter: 2015Q2

REPORT INFORMATION
  Report Type: Spontaneous
  Country: US (occurrence: US)
  Receive Date: 20150326
  Receipt Date: 20150415
  Transmission Date: 20150821
  Serious: Yes (Hospitalization, Other)
  Sender: FDA-Public Use
  Company Number: US-AMGEN-USASP2015027732

PATIENT
  Age: 75 Year
  Sex: Female
  Weight: 76.64 kg

DRUGS (5)
  1. VESICARE [Concomitant]
     Active Substance: SOLIFENACIN SUCCINATE
  2. AMIKIN [Concomitant]
     Active Substance: AMIKACIN SULFATE
  3. PROLIA [Suspect]
     Active Substance: DENOSUMAB
     Indication: OSTEOPOROSIS POSTMENOPAUSAL
     Dosage: 60 MG, Q6MO
     Route: 058
     Dates: start: 20120214
  4. SYNTHROID [Concomitant]
     Active Substance: LEVOTHYROXINE SODIUM
  5. PROTONIX                           /00661201/ [Concomitant]

REACTIONS (2)
  - Vulval abscess [Recovered/Resolved]
  - Cellulitis [Unknown]

NARRATIVE: CASE EVENT DATE: 20150203
